FAERS Safety Report 9270403 (Version 3)
Quarter: 2015Q1

REPORT INFORMATION
  Report Type: Spontaneous
  Country: US (occurrence: US)
  Receive Date: 20130503
  Receipt Date: 20150310
  Transmission Date: 20150721
  Serious: Yes (Disabling, Other)
  Sender: FDA-Public Use
  Company Number: US-009507513-1304USA016113

PATIENT
  Sex: Male
  Weight: 76.64 kg

DRUGS (1)
  1. PROPECIA [Suspect]
     Active Substance: FINASTERIDE
     Indication: ALOPECIA AREATA
     Dosage: 1 MG, QD
     Route: 048
     Dates: start: 20001229, end: 20120601

REACTIONS (26)
  - Blindness [Unknown]
  - Intervertebral disc protrusion [Unknown]
  - Arthritis infective [Unknown]
  - Chronic obstructive pulmonary disease [Not Recovered/Not Resolved]
  - Libido decreased [Not Recovered/Not Resolved]
  - Self esteem decreased [Unknown]
  - Anxiety [Not Recovered/Not Resolved]
  - Pain in extremity [Unknown]
  - Paraesthesia [Unknown]
  - Back pain [Not Recovered/Not Resolved]
  - Erectile dysfunction [Not Recovered/Not Resolved]
  - Secondary hypogonadism [Unknown]
  - Asthma [Unknown]
  - Penile size reduced [Unknown]
  - Hypoaesthesia [Unknown]
  - Intervertebral disc degeneration [Unknown]
  - Rhinitis allergic [Unknown]
  - Cellulitis [Unknown]
  - Blood testosterone decreased [Not Recovered/Not Resolved]
  - Depression [Not Recovered/Not Resolved]
  - Lumbar spinal stenosis [Unknown]
  - Sexual dysfunction [Not Recovered/Not Resolved]
  - Partner stress [Unknown]
  - Sciatica [Unknown]
  - Scoliosis [Unknown]
  - Back disorder [Unknown]

NARRATIVE: CASE EVENT DATE: 2000
